FAERS Safety Report 6165190-1 (Version None)
Quarter: 2009Q2

REPORT INFORMATION
  Report Type: 
  Country: None (occurrence: None)
  Receive Date: 20090421
  Receipt Date: 20090406
  Transmission Date: 20091009
  Serious: Yes (Other)
  Sender: FDA-Public Use
  Company Number: 2009S1006148

PATIENT
  Age: 40 Year
  Sex: Female
  Weight: 50 kg

DRUGS (2)
  1. FLUOXETINE [Suspect]
     Indication: DEPRESSION
     Dosage: 20 MG; ; ORAL
     Route: 048
     Dates: start: 20090210, end: 20090309
  2. FLUOXETINE [Suspect]
     Indication: PREMENSTRUAL SYNDROME
     Dosage: 20 MG; ; ORAL
     Route: 048
     Dates: start: 20090210, end: 20090309

REACTIONS (1)
  - RESTLESS LEGS SYNDROME [None]
